FAERS Safety Report 10264488 (Version 1)
Quarter: 2014Q2

REPORT INFORMATION
  Report Type: Spontaneous
  Country: US (occurrence: US)
  Receive Date: 20140627
  Receipt Date: 20140627
  Transmission Date: 20141212
  Serious: No
  Sender: FDA-Public Use
  Company Number: US-BAYER-2014-096850

PATIENT
  Sex: 0

DRUGS (2)
  1. ALEVE CAPLET [Suspect]
     Dosage: UNK
  2. ALKA-SELTZER ORIGINAL [Suspect]
     Dosage: UNK

REACTIONS (2)
  - Therapeutic response changed [None]
  - Therapeutic response changed [None]
